FAERS Safety Report 11426950 (Version 1)
Quarter: 2015Q3

REPORT INFORMATION
  Report Type: Spontaneous
  Country: US (occurrence: US)
  Receive Date: 20150821
  Receipt Date: 20150821
  Transmission Date: 20151125
  Serious: No
  Sender: FDA-Public Use
  Company Number: US-ELI_LILLY_AND_COMPANY-US201308005323

PATIENT
  Sex: Male

DRUGS (3)
  1. GLIMEPIRIDE. [Interacting]
     Active Substance: GLIMEPIRIDE
     Indication: DIABETES MELLITUS
     Dosage: 1 DF, UNKNOWN
  2. CIALIS [Interacting]
     Active Substance: TADALAFIL
     Dosage: 10 MG, PRN
  3. CIALIS [Suspect]
     Active Substance: TADALAFIL
     Dosage: 5 MG, PRN
     Dates: start: 201308

REACTIONS (3)
  - Lethargy [Unknown]
  - Blood glucose decreased [Unknown]
  - Drug interaction [Unknown]
